FAERS Safety Report 16570857 (Version 1)
Quarter: 2019Q3

REPORT INFORMATION
  Report Type: Spontaneous
  Country: IT (occurrence: IT)
  Receive Date: 20190715
  Receipt Date: 20190715
  Transmission Date: 20191004
  Serious: Yes (Other)
  Sender: FDA-Public Use
  Company Number: IT-ACCORD-138324

PATIENT
  Age: 41 Year
  Sex: Male

DRUGS (2)
  1. ARIPIPRAZOLE. [Suspect]
     Active Substance: ARIPIPRAZOLE
     Indication: MAJOR DEPRESSION
     Route: 048
     Dates: start: 20180301, end: 20190626
  2. CLOZAPINE. [Concomitant]
     Active Substance: CLOZAPINE
     Route: 048

REACTIONS (3)
  - Major depression [Unknown]
  - Off label use [Unknown]
  - Drug ineffective [Unknown]
